FAERS Safety Report 10725685 (Version 1)
Quarter: 2015Q1

REPORT INFORMATION
  Report Type: Spontaneous
  Country: US (occurrence: US)
  Receive Date: 20150121
  Receipt Date: 20150121
  Transmission Date: 20150721
  Serious: No
  Sender: FDA-Public Use
  Company Number: US-BIOGENIDEC-2015BI005857

PATIENT
  Sex: Female

DRUGS (1)
  1. TYSABRI [Suspect]
     Active Substance: NATALIZUMAB
     Indication: MULTIPLE SCLEROSIS
     Route: 042
     Dates: start: 20130916

REACTIONS (7)
  - Swollen tongue [Unknown]
  - Peripheral swelling [Unknown]
  - Fluid retention [Unknown]
  - Weight increased [Not Recovered/Not Resolved]
  - Dysphagia [Unknown]
  - Emotional distress [Unknown]
  - Flushing [Unknown]
